FAERS Safety Report 7177602-5 (Version None)
Quarter: 2010Q4

REPORT INFORMATION
  Report Type: 
  Country: None (occurrence: None)
  Receive Date: 20101207
  Receipt Date: 20101122
  Transmission Date: 20110411
  Serious: No
  Sender: FDA-Public Use
  Company Number: SPI201000283

PATIENT
  Age: 51 Year
  Sex: Female
  Weight: 74.8 kg

DRUGS (2)
  1. AMITIZA [Suspect]
     Indication: CONSTIPATION
     Dosage: 24 MCG, ONCE OR TWICE DAILY, ORAL
     Route: 048
     Dates: start: 20101004, end: 20101118
  2. SINGULAIR [Concomitant]

REACTIONS (2)
  - DYSPNOEA [None]
  - RASH [None]
